FAERS Safety Report 5367079-4 (Version None)
Quarter: 2007Q2

REPORT INFORMATION
  Report Type: 
  Country: None (occurrence: None)
  Receive Date: 20070622
  Receipt Date: 20070612
  Transmission Date: 20071010
  Serious: Yes (Death)
  Sender: FDA-Public Use
  Company Number: B0476152A

PATIENT
  Age: 75 Year
  Sex: Male

DRUGS (6)
  1. AVANDAMET [Suspect]
     Indication: DIABETES MELLITUS
     Route: 048
     Dates: start: 20031001
  2. MICARDIS HCT [Concomitant]
  3. ZOCOR [Concomitant]
  4. DIAMICRON [Concomitant]
  5. ASPIRIN [Concomitant]
  6. EUCARDIC [Concomitant]

REACTIONS (1)
  - MYOCARDIAL INFARCTION [None]
